FAERS Safety Report 5407065-9 (Version None)
Quarter: 2007Q3

REPORT INFORMATION
  Report Type: 
  Country: None (occurrence: None)
  Receive Date: 20070807
  Receipt Date: 20070802
  Transmission Date: 20080115
  Serious: Yes (Hospitalization)
  Sender: FDA-Public Use
  Company Number: FR-ASTRAZENECA-2007CG01140

PATIENT
  Age: 819 Month
  Sex: Female

DRUGS (5)
  1. NOLVADEX [Suspect]
     Indication: BREAST CANCER
     Route: 048
     Dates: start: 19960927, end: 20010927
  2. ENDOXAN [Suspect]
     Indication: BREAST CANCER
     Dosage: SIX CYCLES RECEIVED
     Route: 042
     Dates: start: 19960618
  3. FARMORUBICINE [Suspect]
     Indication: BREAST CANCER
     Dosage: SIX CYCLES RECEIVED
     Route: 042
     Dates: start: 19960618
  4. FLUOROURACIL [Suspect]
     Indication: BREAST CANCER
     Dosage: SIX CYCLES RECEIVED
     Route: 042
     Dates: start: 19960618
  5. RADIOTHERAPY [Concomitant]
     Indication: BREAST CANCER
     Dosage: 4 X 2.5 GRAY PER WEEK
     Dates: start: 19961107, end: 19961209

REACTIONS (1)
  - CHRONIC LYMPHOCYTIC LEUKAEMIA [None]
